FAERS Safety Report 21590128 (Version 1)
Quarter: 2022Q4

REPORT INFORMATION
  Report Type: Spontaneous
  Country: TH (occurrence: TH)
  Receive Date: 20221114
  Receipt Date: 20221114
  Transmission Date: 20230113
  Serious: Yes (Death, Other)
  Sender: FDA-Public Use
  Company Number: TH-PFIZER INC-PV202200099868

PATIENT
  Age: 49 Year
  Sex: Male

DRUGS (1)
  1. LORLATINIB [Suspect]
     Active Substance: LORLATINIB
     Dosage: 100 MG
     Dates: start: 20181127, end: 20190627

REACTIONS (6)
  - Death [Fatal]
  - Hepatic function abnormal [Unknown]
  - Pyrexia [Unknown]
  - Neoplasm progression [Unknown]
  - Weight increased [Unknown]
  - Hypercholesterolaemia [Unknown]
